FAERS Safety Report 11171891 (Version 3)
Quarter: 2015Q3

REPORT INFORMATION
  Report Type: Spontaneous
  Country: CH (occurrence: CH)
  Receive Date: 20150608
  Receipt Date: 20150716
  Transmission Date: 20151125
  Serious: Yes (Life-Threatening, Other)
  Sender: FDA-Public Use
  Company Number: CH-GLAXOSMITHKLINE INC.-CH2015GSK076955

PATIENT
  Age: 40 Year
  Sex: Male

DRUGS (1)
  1. VENTOLIN [Suspect]
     Active Substance: ALBUTEROL SULFATE
     Indication: ASTHMA
     Dosage: 100 UNK, UNK
     Route: 055

REACTIONS (2)
  - Drug administration error [Unknown]
  - Foreign body aspiration [Recovered/Resolved]

NARRATIVE: CASE EVENT DATE: 20101026
